FAERS Safety Report 20439722 (Version 1)
Quarter: 2022Q1

REPORT INFORMATION
  Report Type: Spontaneous
  Country: IT (occurrence: IT)
  Receive Date: 20220207
  Receipt Date: 20220207
  Transmission Date: 20220423
  Serious: Yes (Hospitalization, Other)
  Sender: FDA-Public Use
  Company Number: IT-NOVARTISPH-NVSC2022IT024945

PATIENT
  Age: 27 Year
  Sex: Female

DRUGS (1)
  1. OXCARBAZEPINE [Suspect]
     Active Substance: OXCARBAZEPINE
     Indication: Behaviour disorder
     Dosage: 600 MG, BID
     Route: 065

REACTIONS (3)
  - Seizure [Recovered/Resolved]
  - Hyponatraemia [Recovered/Resolved]
  - Product use in unapproved indication [Unknown]
